FAERS Safety Report 17577779 (Version 1)
Quarter: 2020Q1

REPORT INFORMATION
  Report Type: Report from Study
  Country: GR (occurrence: GR)
  Receive Date: 20200324
  Receipt Date: 20200324
  Transmission Date: 20200409
  Serious: Yes (Hospitalization)
  Sender: FDA-Public Use
  Company Number: GR-MYLANLABS-2020M1029826

PATIENT
  Age: 71 Year
  Sex: Female
  Weight: 98 kg

DRUGS (12)
  1. ZOMETA [Concomitant]
     Active Substance: ZOLEDRONIC ACID
     Dosage: ONGOING = CHECKED
     Dates: start: 20161018
  2. TRASTUZUMAB. [Suspect]
     Active Substance: TRASTUZUMAB
     Dosage: 270 UNK
     Route: 042
     Dates: start: 20170726, end: 20180504
  3. GEMCITABINE. [Suspect]
     Active Substance: GEMCITABINE
     Indication: BREAST CANCER
     Dosage: MOST RECENT DOSE PRIOR TO THE EVENT: 28/AUG/2019
     Route: 042
     Dates: start: 20190510
  4. DOCETAXEL. [Suspect]
     Active Substance: DOCETAXEL
     Indication: BREAST CANCER
     Dosage: MOST RECENT DOSE PRIOR TO THE EVENT: 17/NOV/2016
     Route: 042
     Dates: start: 20161025
  5. TRASTUZUMAB. [Suspect]
     Active Substance: TRASTUZUMAB
     Indication: BREAST CANCER
     Dosage: MOST RECENT DOSE PRIOR TO THE EVENT: 10/MAY/2019
     Route: 042
     Dates: start: 20161025
  6. CAPECITABINE. [Suspect]
     Active Substance: CAPECITABINE
     Indication: BREAST CANCER
     Dosage: MOST RECENT DOSE PRIOR TO THE EVENT: 22/OCT/2018
     Route: 048
     Dates: start: 20180618
  7. PERTUZUMAB. [Suspect]
     Active Substance: PERTUZUMAB
     Indication: BREAST CANCER
     Dosage: MOST RECENT DOSE PRIOR TO THE EVENT: 12/DEC/2016
     Route: 042
     Dates: start: 20161117
  8. LONALGAL [Concomitant]
     Active Substance: ACETAMINOPHEN\CODEINE PHOSPHATE
     Dosage: ONGOING = CHECKED
  9. LAPATINIB [Suspect]
     Active Substance: LAPATINIB
     Indication: BREAST CANCER
     Dosage: MOST RECENT DOSE PRIOR TO THE EVENT: 14/NOV/2018
     Route: 048
     Dates: start: 20180618
  10. T4 [Concomitant]
     Active Substance: LEVOTHYROXINE
     Dosage: ONGOING = CHECKED
     Dates: start: 20090615
  11. T4 [Concomitant]
     Active Substance: LEVOTHYROXINE
     Dosage: ONGOING = CHECKED
     Dates: start: 20090615
  12. CALCIORAL D3 [Concomitant]
     Dosage: ONGOING = CHECKED
     Dates: start: 20171218

REACTIONS (1)
  - Cerebrovascular accident [Recovered/Resolved]

NARRATIVE: CASE EVENT DATE: 20190915
